FAERS Safety Report 9378011 (Version 3)
Quarter: 2013Q3

REPORT INFORMATION
  Report Type: Spontaneous
  Country: US (occurrence: US)
  Receive Date: 20130701
  Receipt Date: 20130821
  Transmission Date: 20140515
  Serious: Yes (Hospitalization, Other)
  Sender: FDA-Public Use
  Company Number: US-B.I. PHARMACEUTICALS,INC./RIDGEFIELD-2013-BI-18251BP

PATIENT
  Age: 50 Year
  Sex: Female
  Weight: 90 kg

DRUGS (13)
  1. DULCOLAX STOOL SOFTENER [Suspect]
     Indication: IRRITABLE BOWEL SYNDROME
     Dosage: 200 MG
     Route: 048
     Dates: start: 2005
  2. VITAMIN B3 [Concomitant]
     Indication: VITAMIN SUPPLEMENTATION
     Dosage: STRENGTH: 2000 IU; DAILY DOSE: 2000 IU
     Route: 048
     Dates: start: 2000
  3. SENIOR MULTIVITAMIN [Concomitant]
     Indication: VITAMIN SUPPLEMENTATION
     Dosage: STRENGTH: ONE TABLET; DAILY DOSE: ONE TABLET
     Route: 048
     Dates: start: 2000
  4. LITHIUM [Concomitant]
     Indication: BIPOLAR I DISORDER
     Dosage: 600 MG
     Route: 048
     Dates: start: 1988
  5. VITAMIN  E [Concomitant]
     Indication: VITAMIN SUPPLEMENTATION
     Dosage: STRENGTH: 400 IU; DAILY DOSE: 400 IU
     Route: 048
     Dates: start: 2000
  6. SYNTHROID [Concomitant]
     Indication: THYROID DISORDER
     Dosage: 150 MCG
     Route: 048
     Dates: start: 1997
  7. OXYBUTYNIN [Concomitant]
     Indication: HYPERTONIC BLADDER
     Dosage: 15 MG
     Route: 048
     Dates: start: 1990
  8. OLANZAPINE [Concomitant]
     Indication: DEPRESSION
     Dosage: 10 MG
     Route: 048
     Dates: start: 1997
  9. IRON [Concomitant]
     Indication: ANAEMIA
     Dosage: 65 MG
     Route: 048
     Dates: start: 1997
  10. VIAMIN D [Concomitant]
     Indication: VITAMIN SUPPLEMENTATION
     Dosage: (TABLET) STRENGTH: 400 IU; DAILY DOSE: 800 IU
     Route: 048
     Dates: start: 2000
  11. VITAMIN B12 [Concomitant]
     Indication: VITAMIN SUPPLEMENTATION
     Dosage: 1000 MCG
     Route: 048
     Dates: start: 2000
  12. OMEPRAZOLE [Concomitant]
     Indication: GASTROOESOPHAGEAL REFLUX DISEASE
     Dosage: 20 MG
     Route: 048
     Dates: start: 2000
  13. VITAMIN B COMPLEX [Concomitant]
     Indication: VITAMIN SUPPLEMENTATION
     Dosage: STRENGTH: ONE TABLET; DAILY DOSE: ONE TABLET
     Route: 048
     Dates: start: 2000

REACTIONS (6)
  - Restless legs syndrome [Not Recovered/Not Resolved]
  - Drug effect decreased [Unknown]
  - Uterine cancer [Not Recovered/Not Resolved]
  - Coma [Recovered/Resolved]
  - Cerebrovascular accident [Recovered/Resolved with Sequelae]
  - Blood calcium increased [Recovered/Resolved]
